FAERS Safety Report 17895581 (Version 2)
Quarter: 2020Q3

REPORT INFORMATION
  Report Type: Spontaneous
  Country: US (occurrence: US)
  Receive Date: 20200615
  Receipt Date: 20200731
  Transmission Date: 20201103
  Serious: Yes (Disabling)
  Sender: FDA-Public Use
  Company Number: US-FRESENIUS KABI-FK202005792

PATIENT
  Sex: Female
  Weight: 56.75 kg

DRUGS (14)
  1. LACTULOSE 10 G/ 15 ML [Suspect]
     Active Substance: LACTULOSE
     Indication: PRODUCT USED FOR UNKNOWN INDICATION
     Dosage: STRENGTH: 10MG/15ML
     Route: 048
     Dates: start: 202001
  2. MUPIROCIN. [Concomitant]
     Active Substance: MUPIROCIN
     Indication: PRODUCT USED FOR UNKNOWN INDICATION
     Dosage: 1 APPL, TID, 1 REFILLS
     Route: 061
  3. NO DRUG NAME [Concomitant]
     Active Substance: UNSPECIFIED INGREDIENT
  4. LACTULOSE 10 G/ 15 ML [Suspect]
     Active Substance: LACTULOSE
     Dosage: STRENGTH: 10MG/15ML, QOD
     Route: 048
     Dates: start: 20191122
  5. FUROSEMIDE SODIUM [Concomitant]
     Active Substance: FUROSEMIDE SODIUM
     Indication: PRODUCT USED FOR UNKNOWN INDICATION
     Dosage: 20 MG, 1 TAB, DAILY
     Route: 048
  6. FORMOTEROL FUMARATE/BUDESONIDE [Concomitant]
     Active Substance: BUDESONIDE\FORMOTEROL FUMARATE
     Indication: PRODUCT USED FOR UNKNOWN INDICATION
     Dosage: 169 MCG?4.5 MCG/INH, 2 PUFFS, INHALE, BID, 1 REFILLS
     Route: 065
  7. CLONIDINE. [Concomitant]
     Active Substance: CLONIDINE
     Indication: PRODUCT USED FOR UNKNOWN INDICATION
     Dosage: 0.3 MG, 1 TAB EVERY DAY AT BEDTIME, 3 REFILLS
     Route: 048
  8. GABAPENTIN. [Concomitant]
     Active Substance: GABAPENTIN
     Indication: PRODUCT USED FOR UNKNOWN INDICATION
     Dosage: 300 MG, 1 CAPSULES, EVERY DAY AT BEDTIME, 2 REFILLS
     Route: 048
  9. PROPRANOLOL [Concomitant]
     Active Substance: PROPRANOLOL HYDROCHLORIDE
     Indication: PRODUCT USED FOR UNKNOWN INDICATION
     Dosage: 40 MG, 1 TABLET DAILY, 3 REFILLS
     Route: 048
  10. LACTULOSE 10 G/ 15 ML [Suspect]
     Active Substance: LACTULOSE
     Dosage: STRENGTH: 10MG/15ML, BID
     Route: 048
     Dates: start: 20191101, end: 20191121
  11. CLONAZEPAM. [Concomitant]
     Active Substance: CLONAZEPAM
     Indication: PRODUCT USED FOR UNKNOWN INDICATION
     Dosage: 0.5 MG, 1 TAB BID
     Route: 048
  12. CLONIDINE. [Concomitant]
     Active Substance: CLONIDINE
     Indication: PRODUCT USED FOR UNKNOWN INDICATION
     Dosage: 0.1 MG, 1 TAB, DAILY, PRN
     Route: 048
  13. MELOXICAM. [Concomitant]
     Active Substance: MELOXICAM
     Indication: PRODUCT USED FOR UNKNOWN INDICATION
     Dosage: 15 MG, 1 TABLET DAILY
     Route: 048
  14. BENAZEPRIL HYDROCHLORIDE/AMLODIPINE BESILATE [Concomitant]
     Indication: PRODUCT USED FOR UNKNOWN INDICATION
     Dosage: 10 MG?40 MG 1 CAPSULES, DAILY, 3 REFILLS
     Route: 048

REACTIONS (6)
  - Weight decreased [Unknown]
  - Tooth loss [Not Recovered/Not Resolved]
  - Tooth fracture [Not Recovered/Not Resolved]
  - Tooth erosion [Unknown]
  - Decreased appetite [Recovering/Resolving]
  - Loose tooth [Not Recovered/Not Resolved]
